FAERS Safety Report 5763849-9 (Version None)
Quarter: 2008Q2

REPORT INFORMATION
  Report Type: 
  Country: None (occurrence: None)
  Receive Date: 20080602
  Receipt Date: 20080403
  Transmission Date: 20081010
  Serious: Yes (Other)
  Sender: FDA-Public Use
  Company Number: PHEH2008US02349

PATIENT
  Sex: Female

DRUGS (1)
  1. TEKTURNA [Suspect]
     Indication: HYPERTENSION
     Dosage: 150 MG ; 150 MG, BID, ORAL
     Dates: start: 20080101

REACTIONS (7)
  - ABDOMINAL PAIN [None]
  - COLD SWEAT [None]
  - DIARRHOEA [None]
  - DIZZINESS [None]
  - DRUG INEFFECTIVE [None]
  - HYPERTENSION [None]
  - NAUSEA [None]
